FAERS Safety Report 20717832 (Version 1)
Quarter: 2022Q2

REPORT INFORMATION
  Report Type: Spontaneous
  Country: BR (occurrence: BR)
  Receive Date: 20220418
  Receipt Date: 20220418
  Transmission Date: 20220721
  Serious: Yes (Hospitalization, Other)
  Sender: FDA-Public Use
  Company Number: BR-ABBVIE-22K-020-4354171-00

PATIENT
  Age: 40 Year
  Sex: Male

DRUGS (2)
  1. HUMIRA [Suspect]
     Active Substance: ADALIMUMAB
     Indication: Psoriatic arthropathy
     Route: 058
     Dates: start: 2017
  2. HUMIRA [Suspect]
     Active Substance: ADALIMUMAB
     Indication: Psoriasis

REACTIONS (19)
  - Urticarial vasculitis [Recovering/Resolving]
  - Sepsis [Recovering/Resolving]
  - Pancytopenia [Recovering/Resolving]
  - Gait disturbance [Not Recovered/Not Resolved]
  - Hyperaemia [Recovering/Resolving]
  - Skin lesion [Recovering/Resolving]
  - Bradypnoea [Recovering/Resolving]
  - Joint swelling [Recovering/Resolving]
  - Choluria [Recovering/Resolving]
  - Renal impairment [Recovering/Resolving]
  - Purpura [Recovering/Resolving]
  - Blister [Recovering/Resolving]
  - Oedema peripheral [Not Recovered/Not Resolved]
  - Diarrhoea [Recovering/Resolving]
  - Infection [Recovering/Resolving]
  - Arthralgia [Recovering/Resolving]
  - Pain in extremity [Recovering/Resolving]
  - Tachycardia [Recovering/Resolving]
  - Pyrexia [Recovering/Resolving]

NARRATIVE: CASE EVENT DATE: 20220302
